FAERS Safety Report 5223734-8 (Version None)
Quarter: 2007Q1

REPORT INFORMATION
  Report Type: 
  Country: None (occurrence: None)
  Receive Date: 20070117
  Receipt Date: 20070109
  Transmission Date: 20070707
  Serious: Yes (Other)
  Sender: FDA-Public Use
  Company Number: FRWYE078709JAN07

PATIENT
  Sex: Male

DRUGS (1)
  1. REFACTO [Suspect]
     Indication: FACTOR VIII DEFICIENCY
     Dosage: INTRAVENOUS
     Route: 042

REACTIONS (2)
  - DRUG INEFFECTIVE [None]
  - POST PROCEDURAL COMPLICATION [None]
